FAERS Safety Report 17734061 (Version 1)
Quarter: 2020Q2

REPORT INFORMATION
  Report Type: Spontaneous
  Country: US (occurrence: US)
  Receive Date: 20200501
  Receipt Date: 20200501
  Transmission Date: 20200714
  Serious: No
  Sender: FDA-Public Use
  Company Number: US-PFIZER INC-2019397582

PATIENT
  Age: 99 Year
  Sex: Female

DRUGS (1)
  1. LYRICA [Suspect]
     Active Substance: PREGABALIN
     Dosage: 1 DF, DAILY(SPREAD THEM OUT INSTEAD OF 2 A DAY, 1 A DAY)

REACTIONS (2)
  - Intentional product use issue [Unknown]
  - Burning sensation [Unknown]
